FAERS Safety Report 5490571-9 (Version None)
Quarter: 2007Q4

REPORT INFORMATION
  Report Type: 
  Country: None (occurrence: None)
  Receive Date: 20071019
  Receipt Date: 20071008
  Transmission Date: 20080405
  Serious: Yes (Hospitalization)
  Sender: FDA-Public Use
  Company Number: US-JNJFOC-20071002565

PATIENT
  Sex: Female

DRUGS (2)
  1. DURAGESIC-100 [Suspect]
     Dosage: 1X 100UG/HR PATCH PLUS 1X 25UG/HR PATCH
     Route: 062
  2. DURAGESIC-100 [Suspect]
     Indication: PAIN
     Route: 062

REACTIONS (5)
  - APPLICATION SITE RASH [None]
  - BEDRIDDEN [None]
  - CATARACT [None]
  - GASTRIC HAEMORRHAGE [None]
  - SERUM FERRITIN DECREASED [None]
